FAERS Safety Report 20691797 (Version 1)
Quarter: 2022Q2

REPORT INFORMATION
  Report Type: Spontaneous
  Country: US (occurrence: None)
  Receive Date: 20220407
  Receipt Date: 20220407
  Transmission Date: 20220721
  Serious: Yes (Hospitalization)
  Sender: FDA-Public Use
  Company Number: None

PATIENT
  Sex: Male

DRUGS (5)
  1. REPATHA [Suspect]
     Active Substance: EVOLOCUMAB
     Indication: Hyperlipidaemia
     Dosage: FREQUENCY : EVERY OTHER WEEK;?
     Route: 058
     Dates: start: 20210813
  2. DULOXETINE [Concomitant]
     Active Substance: DULOXETINE
  3. ESCITALOPRAM [Concomitant]
     Active Substance: ESCITALOPRAM OXALATE
  4. SUPREP BOWEL SOL PREP KIT [Concomitant]
  5. ZETIA [Concomitant]
     Active Substance: EZETIMIBE

REACTIONS (5)
  - Transient global amnesia [None]
  - Disturbance in attention [None]
  - Fatigue [None]
  - Headache [None]
  - Myalgia [None]
